FAERS Safety Report 10172712 (Version 1)
Quarter: 2014Q2

REPORT INFORMATION
  Report Type: Spontaneous
  Country: US (occurrence: None)
  Receive Date: 20140513
  Receipt Date: 20140513
  Transmission Date: 20141212
  Serious: Yes (Other)
  Sender: FDA-Public Use
  Company Number: 104807

PATIENT
  Age: 28 Year
  Sex: Male
  Weight: 70.31 kg

DRUGS (2)
  1. NAPHAZOLINE HCL.012%, POLYSORBATE 80 .2%, ROHTO [Suspect]
     Indication: OCULAR HYPERAEMIA
  2. NAPHAZOLINE HCL.012%, POLYSORBATE 80 .2%, ROHTO [Suspect]
     Indication: EYE IRRITATION

REACTIONS (1)
  - Holmes-Adie pupil [None]
